FAERS Safety Report 8493017-1 (Version None)
Quarter: 2012Q3

REPORT INFORMATION
  Report Type: 
  Country: None (occurrence: None)
  Receive Date: 20120706
  Receipt Date: 20120624
  Transmission Date: 20120928
  Serious: Yes (Death, Hospitalization)
  Sender: FDA-Public Use
  Company Number: US-BRISTOL-MYERS SQUIBB COMPANY-16709669

PATIENT
  Age: 41 Year
  Sex: Male

DRUGS (1)
  1. HYDROXYUREA [Suspect]
     Indication: SICKLE CELL ANAEMIA
     Dates: start: 19900101

REACTIONS (3)
  - MYELODYSPLASTIC SYNDROME [None]
  - PANCYTOPENIA [None]
  - ACUTE MYELOID LEUKAEMIA [None]
